FAERS Safety Report 5047912-6 (Version None)
Quarter: 2006Q3

REPORT INFORMATION
  Report Type: 
  Country: None (occurrence: None)
  Receive Date: 20060711
  Receipt Date: 20060608
  Transmission Date: 20061208
  Serious: Yes (Hospitalization)
  Sender: FDA-Public Use
  Company Number: JP-JPN-A200601918

PATIENT
  Age: 35 Year
  Sex: Female
  Weight: 53 kg

DRUGS (11)
  1. PAXIL [Suspect]
     Indication: INSOMNIA
     Dosage: 40MG PER DAY
     Route: 048
     Dates: start: 20060501
  2. ALPRAZOLAM [Concomitant]
     Indication: INSOMNIA
     Dosage: 1.2MG PER DAY
     Route: 048
  3. HORIZON [Concomitant]
     Indication: INSOMNIA
     Route: 048
  4. LEDOLPER [Concomitant]
     Indication: INSOMNIA
     Dosage: .25MG PER DAY
     Route: 048
  5. UNKNOWN MEDICATION [Concomitant]
     Indication: INSOMNIA
     Dosage: 10MG PER DAY
     Route: 048
  6. VEGETAMIN A [Concomitant]
     Indication: INSOMNIA
     Dosage: 3U PER DAY
     Route: 048
  7. DEPAS [Concomitant]
     Indication: INSOMNIA
     Dosage: 1MG PER DAY
     Route: 048
  8. RESLIN [Concomitant]
     Indication: INSOMNIA
     Dosage: 50MG PER DAY
     Route: 048
     Dates: start: 20060606
  9. ACTIT [Concomitant]
     Indication: DEHYDRATION
     Route: 042
     Dates: start: 20060606, end: 20060618
  10. GLUCOSE [Concomitant]
     Indication: DEHYDRATION
     Route: 042
     Dates: start: 20060606, end: 20060612
  11. UNKNOWN MEDICATION [Concomitant]
     Indication: HYPOPHOSPHATAEMIA
     Route: 042
     Dates: start: 20060606, end: 20060612

REACTIONS (9)
  - ALANINE AMINOTRANSFERASE INCREASED [None]
  - ANOREXIA [None]
  - ASPARTATE AMINOTRANSFERASE INCREASED [None]
  - BACK PAIN [None]
  - C-REACTIVE PROTEIN INCREASED [None]
  - GAMMA-GLUTAMYLTRANSFERASE INCREASED [None]
  - LIVER DISORDER [None]
  - MALAISE [None]
  - PYREXIA [None]
